FAERS Safety Report 8318528-0 (Version None)
Quarter: 2012Q2

REPORT INFORMATION
  Report Type: 
  Country: None (occurrence: None)
  Receive Date: 20120425
  Receipt Date: 20120410
  Transmission Date: 20120825
  Serious: Yes (Hospitalization, Other)
  Sender: FDA-Public Use
  Company Number: 2012P1013437

PATIENT
  Age: 44 Year
  Sex: Male

DRUGS (13)
  1. SIROLIMUS [Concomitant]
  2. CYCLOSPORINE [Concomitant]
  3. AMLODIPINE [Concomitant]
  4. AZATHIOPRINE [Concomitant]
  5. MYCOPHENOLATE MOFETIL [Concomitant]
  6. PREDNISONE TAB [Concomitant]
  7. PROGRAF [Concomitant]
  8. ATORVASTATIN CALCIUM [Concomitant]
  9. FLECAINIDE ACETATE [Concomitant]
  10. ALDARA [Suspect]
     Indication: SKIN PAPILLOMA
     Dosage: 1 APPLICATION; QOD, TOP
     Route: 061
  11. ASPIRIN [Concomitant]
  12. RANITIDINE [Concomitant]
  13. AMIODARONE HCL [Concomitant]

REACTIONS (19)
  - PYREXIA [None]
  - HAEMOGLOBIN DECREASED [None]
  - WHITE BLOOD CELL COUNT INCREASED [None]
  - BLOOD FIBRINOGEN INCREASED [None]
  - MALAISE [None]
  - BACK PAIN [None]
  - RENAL TUBULAR NECROSIS [None]
  - CHILLS [None]
  - HAEMATOCRIT DECREASED [None]
  - COMPLICATIONS OF TRANSPLANTED KIDNEY [None]
  - MYALGIA [None]
  - ASTHENIA [None]
  - NAUSEA [None]
  - NEUTROPHIL PERCENTAGE INCREASED [None]
  - OROPHARYNGEAL PAIN [None]
  - DRUG LEVEL INCREASED [None]
  - DIZZINESS [None]
  - HAEMODIALYSIS [None]
  - FATIGUE [None]
